FAERS Safety Report 4565252-6 (Version None)
Quarter: 2005Q1

REPORT INFORMATION
  Report Type: 
  Country: None (occurrence: None)
  Receive Date: 20050131
  Receipt Date: 20050103
  Transmission Date: 20050727
  Serious: Yes (Other)
  Sender: FDA-Public Use
  Company Number: FR-ROCHE-391318

PATIENT
  Age: 97 Year
  Sex: Female

DRUGS (1)
  1. ROCEPHIN [Suspect]
     Dosage: 1 G/3.5 ML. INJECTABLE SOLUTION.
     Route: 065

REACTIONS (1)
  - RENAL FAILURE [None]
